FAERS Safety Report 4709836-0 (Version None)
Quarter: 2005Q3

REPORT INFORMATION
  Report Type: 
  Country: None (occurrence: None)
  Receive Date: 20050708
  Receipt Date: 20050630
  Transmission Date: 20060218
  Serious: Yes (Hospitalization)
  Sender: FDA-Public Use
  Company Number: US-BOEHRINGER INGELHEIM PHARMACEUTICALS, INC.-2005-BP-11164BP

PATIENT
  Sex: Female

DRUGS (2)
  1. MIRAPEX [Suspect]
     Indication: PARKINSON'S DISEASE
  2. MIRAPEX [Suspect]
     Route: 048
     Dates: start: 20040101

REACTIONS (3)
  - BACK INJURY [None]
  - HYPOAESTHESIA [None]
  - SPINAL DISORDER [None]
